FAERS Safety Report 5822086-X (Version None)
Quarter: 2008Q3

REPORT INFORMATION
  Report Type: 
  Country: None (occurrence: None)
  Receive Date: 20080722
  Receipt Date: 20080722
  Transmission Date: 20090109
  Serious: Yes (Other)
  Sender: FDA-Public Use
  Company Number: None

PATIENT
  Age: 38 Year
  Sex: Male
  Weight: 82.5547 kg

DRUGS (2)
  1. CYMBALTA [Suspect]
     Indication: DEPRESSION
     Dosage: 60MG TWICE TD PO
     Route: 048
     Dates: start: 20070701, end: 20080601
  2. CYMBALTA [Suspect]
     Indication: FIBROMYALGIA
     Dosage: 60MG TWICE TD PO
     Route: 048
     Dates: start: 20070701, end: 20080601

REACTIONS (2)
  - GRIP STRENGTH DECREASED [None]
  - PARAESTHESIA [None]
